FAERS Safety Report 6389299-2 (Version None)
Quarter: 2009Q4

REPORT INFORMATION
  Report Type: 
  Country: None (occurrence: None)
  Receive Date: 20091006
  Receipt Date: 20090930
  Transmission Date: 20100525
  Serious: Yes (Death, Hospitalization)
  Sender: FDA-Public Use
  Company Number: PHEH2009US12350

PATIENT
  Sex: Male

DRUGS (1)
  1. EXJADE [Suspect]
     Indication: MULTIPLE MYELOMA
     Dosage: 1000 MG DAILY
     Route: 048

REACTIONS (2)
  - IMPAIRED HEALING [None]
  - MYELODYSPLASTIC SYNDROME TRANSFORMATION [None]
